FAERS Safety Report 4861729-4 (Version None)
Quarter: 2005Q4

REPORT INFORMATION
  Report Type: 
  Country: None (occurrence: None)
  Receive Date: 20051220
  Receipt Date: 20050420
  Transmission Date: 20060501
  Serious: Yes (Hospitalization)
  Sender: FDA-Public Use
  Company Number: US-MERCK-0504USA03942

PATIENT
  Age: 58 Year
  Sex: Male

DRUGS (7)
  1. VIOXX [Suspect]
     Indication: OSTEOARTHRITIS
     Route: 048
     Dates: start: 20000601, end: 20010125
  2. VIOXX [Suspect]
     Route: 048
     Dates: start: 20010601
  3. VIOXX [Suspect]
     Indication: ARTHRITIS
     Route: 048
     Dates: start: 20000601, end: 20010125
  4. VIOXX [Suspect]
     Route: 048
     Dates: start: 20010601
  5. AVANDIA [Concomitant]
     Route: 065
  6. GLUCOPHAGE [Concomitant]
     Route: 065
  7. GLUCOTROL [Concomitant]
     Route: 065

REACTIONS (4)
  - DIABETES MELLITUS INADEQUATE CONTROL [None]
  - GRAVITATIONAL OEDEMA [None]
  - LACUNAR INFARCTION [None]
  - NEUROPATHY PERIPHERAL [None]
